FAERS Safety Report 22654051 (Version 1)
Quarter: 2023Q2

REPORT INFORMATION
  Report Type: Spontaneous
  Country: US (occurrence: None)
  Receive Date: 20230629
  Receipt Date: 20230629
  Transmission Date: 20230722
  Serious: No
  Sender: FDA-Public Use
  Company Number: US-ACS-20230181

PATIENT
  Age: 69 Year
  Sex: Female

DRUGS (5)
  1. CEFEPIME [Suspect]
     Active Substance: CEFEPIME HYDROCHLORIDE
  2. Gadolinium-Containing Contrast Media [Concomitant]
  3. IBRANCE [Concomitant]
     Active Substance: PALBOCICLIB
     Dosage: 1 CAPSULE DAILY X 21 DAYS EVERY 28 DAYS (3 WEEKS ON, 1 WEEK OFF) ()
     Route: 048
     Dates: start: 20220823
  4. LETROZOLE [Concomitant]
     Active Substance: LETROZOLE
     Dosage: ()
     Dates: start: 202202
  5. PLAVIX [Concomitant]
     Active Substance: CLOPIDOGREL BISULFATE
     Dosage: ()
     Dates: start: 202206

REACTIONS (1)
  - Drug ineffective [Unknown]

NARRATIVE: CASE EVENT DATE: 20221213
